FAERS Safety Report 13049464 (Version 1)
Quarter: 2016Q4

REPORT INFORMATION
  Report Type: Spontaneous
  Country: ZA (occurrence: ZA)
  Receive Date: 20161221
  Receipt Date: 20161221
  Transmission Date: 20170207
  Serious: Yes (Hospitalization, Other)
  Sender: FDA-Public Use
  Company Number: ZA-PFIZER INC-2016588454

PATIENT
  Age: 67 Year
  Sex: Female

DRUGS (5)
  1. SERLIFE [Concomitant]
     Active Substance: SERTRALINE HYDROCHLORIDE
     Indication: DEPRESSION
     Dosage: 50 MG, DAILY
     Route: 048
  2. REVATIO [Suspect]
     Active Substance: SILDENAFIL CITRATE
     Indication: PULMONARY ARTERIAL HYPERTENSION
     Dosage: 60 MG, DAILY
     Route: 048
  3. TREPILINE [Concomitant]
     Active Substance: AMITRIPTYLINE
     Indication: MENTAL DISORDER
     Dosage: 25 MG, DAILY (AT NIGHT)
     Route: 048
  4. MYLAN METFORMIN [Concomitant]
     Indication: TYPE 2 DIABETES MELLITUS
     Dosage: 500 MG, DAILY
     Route: 048
  5. ADCO-SIMVASTATIN [Concomitant]
     Indication: BLOOD CHOLESTEROL ABNORMAL
     Dosage: 20 MG, DAILY (AT NIGHT)
     Route: 048

REACTIONS (2)
  - Malaise [Unknown]
  - Circulatory collapse [Unknown]
